FAERS Safety Report 6261340-7 (Version None)
Quarter: 2009Q3

REPORT INFORMATION
  Report Type: 
  Country: None (occurrence: None)
  Receive Date: 20090709
  Receipt Date: 20090701
  Transmission Date: 20100115
  Serious: Yes (Hospitalization)
  Sender: FDA-Public Use
  Company Number: PHHY2009JP19477

PATIENT
  Sex: Female
  Weight: 38 kg

DRUGS (6)
  1. CGS 20267 T30748+TAB [Suspect]
     Indication: BREAST CANCER
     Dosage: 2.5 MG DAILY
     Route: 048
     Dates: start: 20070509, end: 20080410
  2. CGS 20267 T30748+TAB [Suspect]
     Dosage: 2.5 MG DAILY
     Route: 048
     Dates: start: 20080521
  3. ARIMIDEX [Concomitant]
     Dosage: UNK
     Route: 048
     Dates: start: 20070214, end: 20070314
  4. NEUQUINON [Concomitant]
     Dosage: 30 MG, UNK
     Route: 048
     Dates: start: 20070612
  5. LUPRAC [Concomitant]
     Dosage: 8 MG, UNK
     Route: 048
     Dates: start: 20070612
  6. TOUGHMAC E [Concomitant]
     Dosage: 3 DF, UNK
     Route: 048
     Dates: start: 20070612

REACTIONS (4)
  - C-REACTIVE PROTEIN INCREASED [None]
  - PNEUMONIA [None]
  - RECTOSIGMOID CANCER [None]
  - SIGMOIDECTOMY [None]
